FAERS Safety Report 8221522-1 (Version None)
Quarter: 2012Q1

REPORT INFORMATION
  Report Type: 
  Country: None (occurrence: None)
  Receive Date: 20120316
  Receipt Date: 20120303
  Transmission Date: 20120608
  Serious: Yes (Other)
  Sender: FDA-Public Use
  Company Number: JPI-P-019435

PATIENT
  Age: 41 Year
  Sex: Female
  Weight: 71.2147 kg

DRUGS (12)
  1. ESCITALOPRAM OXALATE [Concomitant]
  2. XYREM [Suspect]
     Indication: SLEEP DISORDER
     Dosage: SEE IMAGE
     Route: 048
     Dates: start: 20110609
  3. XYREM [Suspect]
     Indication: RAPID EYE MOVEMENTS SLEEP ABNORMAL
     Dosage: SEE IMAGE
     Route: 048
     Dates: start: 20110609
  4. XYREM [Suspect]
     Indication: SLEEP DISORDER
     Dosage: SEE IMAGE
     Route: 048
     Dates: start: 20120214
  5. XYREM [Suspect]
     Indication: RAPID EYE MOVEMENTS SLEEP ABNORMAL
     Dosage: SEE IMAGE
     Route: 048
     Dates: start: 20120214
  6. XYREM [Suspect]
     Indication: SLEEP DISORDER
     Dosage: SEE IMAGE
     Route: 048
     Dates: start: 20110101
  7. XYREM [Suspect]
     Indication: RAPID EYE MOVEMENTS SLEEP ABNORMAL
     Dosage: SEE IMAGE
     Route: 048
     Dates: start: 20110101
  8. XYREM [Suspect]
     Indication: SLEEP DISORDER
     Dosage: SEE IMAGE
     Route: 048
     Dates: start: 20110531, end: 20110101
  9. XYREM [Suspect]
     Indication: RAPID EYE MOVEMENTS SLEEP ABNORMAL
     Dosage: SEE IMAGE
     Route: 048
     Dates: start: 20110531, end: 20110101
  10. ALPRAZOLAM [Concomitant]
  11. QUETIAPINE FUMARATE [Concomitant]
  12. CLONAZEPAM [Concomitant]

REACTIONS (4)
  - TREATMENT NONCOMPLIANCE [None]
  - INSOMNIA [None]
  - ECONOMIC PROBLEM [None]
  - CONVULSION [None]
